FAERS Safety Report 16364139 (Version 5)
Quarter: 2022Q2

REPORT INFORMATION
  Report Type: Report from Study
  Country: IL (occurrence: IL)
  Receive Date: 20190528
  Receipt Date: 20220411
  Transmission Date: 20220720
  Serious: Yes (Hospitalization)
  Sender: FDA-Public Use
  Company Number: IL-SHIRE-IL201902237

PATIENT
  Age: 39 Year
  Sex: Male
  Weight: 64.98 kg

DRUGS (2)
  1. VELAGLUCERASE ALFA [Suspect]
     Active Substance: VELAGLUCERASE ALFA
     Indication: Gaucher^s disease
     Dosage: 15 INTERNATIONAL UNIT/KILOGRAM, 1X/2WKS
     Route: 042
     Dates: start: 20140407
  2. MINOCYCLINE [Concomitant]
     Active Substance: MINOCYCLINE HYDROCHLORIDE
     Indication: Product used for unknown indication
     Route: 065

REACTIONS (11)
  - Humerus fracture [Recovered/Resolved]
  - Fall [Unknown]
  - Joint range of motion decreased [Unknown]
  - Excessive granulation tissue [Unknown]
  - Scar [Unknown]
  - Dehiscence [Unknown]
  - Peripheral arterial occlusive disease [Unknown]
  - Bone loss [Unknown]
  - Muscle injury [Unknown]
  - Inflammation [Unknown]
  - Pyrexia [Unknown]

NARRATIVE: CASE EVENT DATE: 20190116
